FAERS Safety Report 6119283-5 (Version None)
Quarter: 2009Q1

REPORT INFORMATION
  Report Type: 
  Country: None (occurrence: None)
  Receive Date: 20090311
  Receipt Date: 20090224
  Transmission Date: 20090719
  Serious: Yes (Hospitalization)
  Sender: FDA-Public Use
  Company Number: 2009S1003224

PATIENT
  Age: 37 Year
  Sex: Male

DRUGS (1)
  1. NAPROXEN [Suspect]
     Indication: SUICIDE ATTEMPT
     Dosage: ORAL
     Route: 048

REACTIONS (6)
  - ALCOHOL USE [None]
  - ASPARTATE AMINOTRANSFERASE INCREASED [None]
  - BLOOD BILIRUBIN INCREASED [None]
  - HEPATIC ENZYME INCREASED [None]
  - HYPERBILIRUBINAEMIA [None]
  - SUICIDE ATTEMPT [None]
